FAERS Safety Report 5100646-1 (Version None)
Quarter: 2006Q3

REPORT INFORMATION
  Report Type: 
  Country: None (occurrence: None)
  Receive Date: 20060906
  Receipt Date: 20060824
  Transmission Date: 20061208
  Serious: Yes (Hospitalization)
  Sender: FDA-Public Use
  Company Number: 2006_000024

PATIENT
  Age: 58 Year
  Sex: Female

DRUGS (5)
  1. DEPOCYT [Suspect]
     Indication: METASTASES TO MENINGES
     Dosage: 50 MG;QOW;INTH
     Route: 037
     Dates: start: 20060523, end: 20060707
  2. TEMODAR [Suspect]
     Dosage: 100 MG; PO
     Route: 048
     Dates: start: 20060523, end: 20060612
  3. DOXIL [Concomitant]
  4. ABRAXANE [Concomitant]
  5. DEXAMETHASONE TAB [Concomitant]

REACTIONS (6)
  - ANAEMIA [None]
  - ASTHENIA [None]
  - BONE MARROW FAILURE [None]
  - DISSEMINATED INTRAVASCULAR COAGULATION [None]
  - DYSPNOEA [None]
  - MUSCULAR WEAKNESS [None]
